FAERS Safety Report 18086580 (Version 1)
Quarter: 2020Q3

REPORT INFORMATION
  Report Type: Spontaneous
  Country: US (occurrence: US)
  Receive Date: 20200728
  Receipt Date: 20200728
  Transmission Date: 20201103
  Serious: Yes (Other)
  Sender: FDA-Public Use
  Company Number: US-JNJFOC-20200732386

PATIENT
  Age: 59 Year
  Sex: Female
  Weight: 89.34 kg

DRUGS (13)
  1. TRAMADOL HYDROCHLORIDE. [Suspect]
     Active Substance: TRAMADOL HYDROCHLORIDE
     Indication: PAIN
     Dosage: 50 MILLIGRAM, EVERY 6 HRS
     Route: 065
     Dates: start: 20191120
  2. NALBUPHINE [Suspect]
     Active Substance: NALBUPHINE
     Indication: FIBROMYALGIA
  3. NUCYNTA [Suspect]
     Active Substance: TAPENTADOL HYDROCHLORIDE
     Indication: INTERVERTEBRAL DISC DEGENERATION
  4. TRAMADOL HYDROCHLORIDE. [Suspect]
     Active Substance: TRAMADOL HYDROCHLORIDE
     Indication: FIBROMYALGIA
  5. TRAMADOL HYDROCHLORIDE. [Suspect]
     Active Substance: TRAMADOL HYDROCHLORIDE
     Indication: INTERVERTEBRAL DISC DEGENERATION
  6. NALBUPHINE [Suspect]
     Active Substance: NALBUPHINE
     Indication: INTERVERTEBRAL DISC DEGENERATION
  7. NUCYNTA [Suspect]
     Active Substance: TAPENTADOL HYDROCHLORIDE
     Indication: PAIN
  8. NUCYNTA [Suspect]
     Active Substance: TAPENTADOL HYDROCHLORIDE
     Indication: FIBROMYALGIA
  9. NUCYNTA [Suspect]
     Active Substance: TAPENTADOL HYDROCHLORIDE
     Indication: PROCEDURAL PAIN
     Dosage: 50 MILLIGRAM, EVERY 6 HRS
     Route: 065
     Dates: start: 201107
  10. NUCYNTA [Suspect]
     Active Substance: TAPENTADOL HYDROCHLORIDE
     Indication: RHEUMATOID ARTHRITIS
  11. NALBUPHINE [Suspect]
     Active Substance: NALBUPHINE
     Indication: PAIN
     Dosage: 1 MILLILITRE, 4/DAY
     Route: 065
  12. NALBUPHINE [Suspect]
     Active Substance: NALBUPHINE
     Indication: RHEUMATOID ARTHRITIS
  13. TRAMADOL HYDROCHLORIDE. [Suspect]
     Active Substance: TRAMADOL HYDROCHLORIDE
     Indication: RHEUMATOID ARTHRITIS

REACTIONS (3)
  - Constipation [Unknown]
  - Altered state of consciousness [Unknown]
  - Drug ineffective [Unknown]
